FAERS Safety Report 24996220 (Version 2)
Quarter: 2025Q3

REPORT INFORMATION
  Report Type: Report from Study
  Country: AR (occurrence: AR)
  Receive Date: 20250221
  Receipt Date: 20250708
  Transmission Date: 20251021
  Serious: Yes (Hospitalization)
  Sender: NOVARTIS
  Company Number: AR-002147023-NVSC2024AR241571

PATIENT
  Age: 52 Year
  Sex: Female

DRUGS (4)
  1. KISQALI [Suspect]
     Active Substance: RIBOCICLIB SUCCINATE
     Indication: Breast cancer metastatic
     Route: 065
     Dates: start: 20241203
  2. KISQALI [Suspect]
     Active Substance: RIBOCICLIB SUCCINATE
     Dosage: 2 DOSAGE FORM, QD (400 MG) FROM 10 FEB
     Route: 065
  3. KISQALI [Suspect]
     Active Substance: RIBOCICLIB SUCCINATE
     Dosage: 300 MG/KG, TID
     Route: 048
  4. KISQALI [Suspect]
     Active Substance: RIBOCICLIB SUCCINATE
     Dosage: 2 DOSAGE FORM, QD (REDUCED DOSE)
     Route: 065
     Dates: start: 20250210

REACTIONS (18)
  - Gastritis [Unknown]
  - Hepatitis [Unknown]
  - Ulcer [Unknown]
  - Malaise [Unknown]
  - Nausea [Unknown]
  - Abdominal discomfort [Unknown]
  - Fatigue [Unknown]
  - Anxiety [Unknown]
  - Alopecia [Unknown]
  - Diplopia [Unknown]
  - Decreased immune responsiveness [Unknown]
  - Incorrect dose administered [Unknown]
  - Diarrhoea [Unknown]
  - General physical health deterioration [Unknown]
  - Lid sulcus deepened [Unknown]
  - Oropharyngeal pain [Unknown]
  - Illness [Unknown]
  - Liver disorder [Unknown]

NARRATIVE: CASE EVENT DATE: 20241203
